FAERS Safety Report 23952151 (Version 4)
Quarter: 2024Q3

REPORT INFORMATION
  Report Type: Spontaneous
  Country: US (occurrence: US)
  Receive Date: 20240607
  Receipt Date: 20240822
  Transmission Date: 20241016
  Serious: Yes (Hospitalization, Other)
  Sender: GLAXOSMITHKLINE
  Company Number: US-GLAXOSMITHKLINE-US2024AMR068956

PATIENT

DRUGS (38)
  1. LAMICTAL [Suspect]
     Active Substance: LAMOTRIGINE
     Indication: Epilepsy
     Dosage: 25 MG, BID
     Route: 048
     Dates: start: 20230918, end: 20231114
  2. KEPPRA [Suspect]
     Active Substance: LEVETIRACETAM
     Indication: Epilepsy
     Dosage: 1 DF, QD, BEDTIME FOR 1 WEEK
     Route: 048
     Dates: start: 20230913, end: 20231114
  3. PREDNISOLONE ACETATE [Suspect]
     Active Substance: PREDNISOLONE ACETATE
     Indication: Product used for unknown indication
     Dosage: UNK, TID, INSTILL 1 DROP IN BOTH EYES 4 TIMES A DAY, 5 ML
     Dates: start: 20240319
  4. LACOSAMIDE [Suspect]
     Active Substance: LACOSAMIDE
     Indication: Product used for unknown indication
     Dosage: 1 DF, BID, 50 MG
     Route: 048
     Dates: start: 20240301
  5. LACOSAMIDE [Suspect]
     Active Substance: LACOSAMIDE
     Dosage: 1 DF, BID, 50 MG
     Route: 048
     Dates: start: 20240327
  6. PANTOPRAZOLE [Suspect]
     Active Substance: PANTOPRAZOLE
     Indication: Product used for unknown indication
     Dosage: 1 DF, BID, 30 MINUTES BEFORE BREAKFAST AND DINNER
     Route: 048
     Dates: start: 20240228
  7. PANTOPRAZOLE [Suspect]
     Active Substance: PANTOPRAZOLE
     Dosage: 1 DF, BID, 30 MINUTES BEFORE BREAKFAST AND DINNER
     Route: 048
     Dates: start: 20240523
  8. ASCORBIC ACID [Suspect]
     Active Substance: ASCORBIC ACID
     Indication: Product used for unknown indication
     Dosage: 2 DF, BID
     Dates: start: 20240206
  9. FLUOROMETHOLONE [Suspect]
     Active Substance: FLUOROMETHOLONE
     Indication: Product used for unknown indication
     Dosage: UNK UNK, BID, INSTILL 1 DROP IN BOTH EYES 2 TIMES A DAY, 5ML
     Dates: start: 20240206
  10. DEXAMETHASONE [Suspect]
     Active Substance: DEXAMETHASONE
     Indication: Stomatitis
     Dosage: UNK, SWISH AND SPIT 5 ML BY MOUTH DAILY AS NEEDED
     Dates: start: 20240125
  11. TRETINOIN [Suspect]
     Active Substance: TRETINOIN
     Indication: Product used for unknown indication
     Dosage: UNK APPLY TO AFFECTED AREA(S) DAILY AT BEDTIME, 20 G
     Dates: start: 20240124
  12. MELOXICAM [Suspect]
     Active Substance: MELOXICAM
     Indication: Inflammation
     Dosage: 1 DF, QD, TAKE WITH FOOD
     Route: 048
     Dates: start: 20240311
  13. MELOXICAM [Suspect]
     Active Substance: MELOXICAM
     Indication: Pain
     Dosage: 1 DF, QD, TAKE WITH FOOD
     Route: 048
     Dates: start: 20240410
  14. TEMOVATE [Suspect]
     Active Substance: CLOBETASOL PROPIONATE
     Indication: Pain
     Dosage: UNK, BID, 0.05 % TOP GEL, APPLY TO AFFECTED AREAS
     Dates: start: 20231206
  15. TEMOVATE [Suspect]
     Active Substance: CLOBETASOL PROPIONATE
     Indication: Swelling
  16. CLOBETASOL [Suspect]
     Active Substance: CLOBETASOL
     Indication: Pain
     Dosage: UNK UNK, BID, APPLY TO AFFECTED AREA(S)
     Dates: start: 20231206
  17. CLOBETASOL [Suspect]
     Active Substance: CLOBETASOL
     Indication: Swelling
  18. ACETAMINOPHEN [Suspect]
     Active Substance: ACETAMINOPHEN
     Indication: Pain
     Dosage: 2 DF, EVERY 4 HOURS
     Route: 048
     Dates: start: 20231130, end: 20231130
  19. FERROUS SULFATE [Suspect]
     Active Substance: FERROUS SULFATE
     Indication: Product used for unknown indication
     Dosage: 1 DF, QOD
     Route: 048
     Dates: start: 20231125
  20. ETANERCEPT [Suspect]
     Active Substance: ETANERCEPT
     Indication: Vulvovaginal inflammation
     Dosage: 625 MG, QD, INSERT ONE-HALF GRAM VAGINALLY
  21. LIDOCAINE [Suspect]
     Active Substance: LIDOCAINE
     Indication: Product used for unknown indication
     Dosage: UNK, 2%MM SOLUTION
  22. FOLIC ACID [Suspect]
     Active Substance: FOLIC ACID
     Indication: Malnutrition
     Dosage: 1 DF, QD, 1 MG
     Route: 048
     Dates: start: 20231125
  23. FOLIC ACID [Suspect]
     Active Substance: FOLIC ACID
     Dosage: 1 DF, QD, 1 MG
     Route: 048
     Dates: start: 20240410
  24. THIAMINE [Suspect]
     Active Substance: THIAMINE
     Indication: Malnutrition
     Dosage: 100 MG, QD
     Route: 048
     Dates: start: 20231125
  25. THIAMINE [Suspect]
     Active Substance: THIAMINE
     Dosage: 100 MG, QD
     Route: 048
     Dates: start: 20240410
  26. FAMOTIDINE [Suspect]
     Active Substance: FAMOTIDINE
     Indication: Gastrooesophageal reflux disease
     Dosage: 1 DF, BID, 20 MG
     Route: 048
     Dates: end: 20231114
  27. TRIAMCINOLONE ACETONIDE [Suspect]
     Active Substance: TRIAMCINOLONE ACETONIDE
     Indication: Product used for unknown indication
     Dosage: UNK, BID, APPLY TO AFFECTED AREA
  28. SERTRALINE [Suspect]
     Active Substance: SERTRALINE HYDROCHLORIDE
     Indication: Product used for unknown indication
     Dosage: 1 DF, QD
  29. CYCLOBENZAPRINE [Suspect]
     Active Substance: CYCLOBENZAPRINE
     Indication: Muscle spasms
     Dosage: 1 DF, QD
     Route: 048
  30. CYCLOBENZAPRINE [Suspect]
     Active Substance: CYCLOBENZAPRINE
     Indication: Back pain
  31. LORAZEPAM [Suspect]
     Active Substance: LORAZEPAM
     Indication: Product used for unknown indication
     Dosage: 1 MG, TAKE 2 TABLETS BY MOUTH PRIOR TO MRI
     Route: 048
  32. TYLENOL [Suspect]
     Active Substance: ACETAMINOPHEN
     Indication: Product used for unknown indication
     Dosage: UNK
     Route: 048
  33. PREMARIN [Suspect]
     Active Substance: ESTROGENS, CONJUGATED
     Indication: Product used for unknown indication
     Dosage: 1.5 G, QD, INSERT VAGINALLY AT BEDTIME AROUND TAMPON FOR VAGINAL MUCOSITIS FOR 1 TO 2 WEEKS
     Dates: start: 20231125
  34. WHITE PETROLATUM [Suspect]
     Active Substance: PETROLATUM
     Indication: Product used for unknown indication
     Dosage: UNK, QID, APPLY 0.25INCHES OVER BOTH EYELIDS
     Dates: start: 20231125
  35. WHITE PETROLATUM [Suspect]
     Active Substance: PETROLATUM
     Indication: Product used for unknown indication
     Dosage: UNK UNK, BID, APPLY TO AFFECTED AREA(S)
     Dates: start: 20231125
  36. REFRESH OPTIVE ADVANCED [Suspect]
     Active Substance: CARBOXYMETHYLCELLULOSE SODIUM\GLYCERIN\POLYSORBATE 80
     Indication: Product used for unknown indication
     Dosage: 1 GTT, IN BOTH EYES EVERY HOUR WHILE AWAKE
     Dates: start: 20231125
  37. ONDANSETRON [Concomitant]
     Active Substance: ONDANSETRON
     Indication: Product used for unknown indication
     Dosage: 4 MG
     Route: 042
  38. OFLOXACIN [Concomitant]
     Active Substance: OFLOXACIN
     Indication: Conjunctivitis
     Dosage: UNK, QID,  0.3% OPTH DROP, INSTILL 1 DROP IN BOTH EYES
     Dates: start: 20231106

REACTIONS (28)
  - Drug hypersensitivity [Recovering/Resolving]
  - Stevens-Johnson syndrome [Recovering/Resolving]
  - Tachycardia [Unknown]
  - Toxic epidermal necrolysis [Unknown]
  - Anaemia [Unknown]
  - Dysphagia [Unknown]
  - Hand-foot-and-mouth disease [Unknown]
  - Rash [Recovering/Resolving]
  - Urticaria [Unknown]
  - Vulvovaginal pruritus [Unknown]
  - Vaginal infection [Unknown]
  - Stomatitis [Unknown]
  - Malnutrition [Unknown]
  - Eye pruritus [Unknown]
  - Dry eye [Unknown]
  - Eyelid margin crusting [Unknown]
  - Eye irritation [Unknown]
  - Lacrimation increased [Unknown]
  - Oropharyngeal pain [Unknown]
  - Pain [Unknown]
  - Heart rate increased [Unknown]
  - Pyrexia [Unknown]
  - Oral mucosal blistering [Unknown]
  - Lip pain [Unknown]
  - Eye pain [Unknown]
  - Hordeolum [Unknown]
  - Photophobia [Unknown]
  - Eye disorder [Unknown]

NARRATIVE: CASE EVENT DATE: 20231111
